FAERS Safety Report 8471198-3 (Version None)
Quarter: 2012Q2

REPORT INFORMATION
  Report Type: 
  Country: None (occurrence: None)
  Receive Date: 20120627
  Receipt Date: 20120621
  Transmission Date: 20120825
  Serious: Yes (Death)
  Sender: FDA-Public Use
  Company Number: GB-PFIZER INC-2012112779

PATIENT
  Age: 77 Year
  Sex: Female

DRUGS (29)
  1. PIOGLITAZONE [Concomitant]
     Indication: DIABETES MELLITUS
     Dosage: 45 MG, DAILY
     Dates: start: 20050322
  2. ASPIRIN [Concomitant]
     Dosage: 75 MG, UNK
     Dates: start: 20030114
  3. METFORMIN [Concomitant]
     Indication: DIABETES MELLITUS
     Dosage: 1 G, 3X/DAY
     Dates: start: 20011115
  4. SYMBICORT [Concomitant]
     Dosage: 400/12,1 UNK, 2X/DAY
     Dates: start: 20060328
  5. AMIODARONE [Concomitant]
     Dosage: 200 DAILY
     Dates: start: 20050927
  6. THEOPHYLLINE [Concomitant]
     Dosage: 225 MG, 2X/DAY
     Dates: start: 20050322
  7. HYDROCORTISONE [Concomitant]
     Indication: BLOOD CORTICOTROPHIN DECREASED
     Dosage: 25 MG, UNK
     Dates: start: 20011130
  8. SOMATROPIN RDNA [Suspect]
     Dosage: 0.5 UNK, UNK
     Dates: start: 20030708
  9. SALBUTAMOL [Concomitant]
     Dosage: 8 DAILY
     Dates: start: 20060328
  10. SALBUTAMOL [Concomitant]
     Dosage: UNK
     Dates: start: 20060328
  11. LEVOTHYROXINE [Concomitant]
     Dosage: 100 UG, DAILY
     Dates: start: 20010820
  12. SOMATROPIN RDNA [Suspect]
     Dosage: 0.3 UNK, UNK
     Dates: start: 20021004
  13. SOMATROPIN RDNA [Suspect]
     Dosage: 0.5 UNK, UNK
     Dates: start: 20040113
  14. SOMATROPIN RDNA [Suspect]
     Dosage: 0.5 UNK, UNK
     Dates: start: 20050927
  15. TIOTROPIUM [Concomitant]
     Dosage: 18 DAILY
     Dates: start: 20060328
  16. DILTIAZEM [Concomitant]
     Dosage: 60 MG, 3X/DAY
     Dates: start: 20020620
  17. SOMATROPIN RDNA [Suspect]
     Dosage: 0.5 UNK, UNK
     Dates: start: 20030114
  18. SOMATROPIN RDNA [Suspect]
     Dosage: 0.5 UNK, UNK
     Dates: start: 20040831
  19. SOMATROPIN RDNA [Suspect]
     Dosage: 0.5 UNK, UNK
     Dates: start: 20050322
  20. AMILORIDE [Concomitant]
     Dosage: DAILY
     Dates: start: 20050927
  21. ATORVASTATIN [Concomitant]
     Dosage: 10 MG, DAILY
     Dates: start: 20030708
  22. GLICLAZIDE [Concomitant]
     Indication: DIABETES MELLITUS
     Dosage: 80 DAILY
     Dates: start: 20060328
  23. COMBIVENT [Concomitant]
     Dosage: 2 UNK, UNK
     Dates: start: 20060328
  24. SOMATROPIN RDNA [Suspect]
     Dosage: 0.5 UNK, UNK
     Dates: start: 20060328
  25. LISINOPRIL [Concomitant]
     Dosage: 5 DAILY
     Dates: start: 20060328
  26. OXIS TURBUHALER ^ASTRA ZENECA^ [Concomitant]
     Dosage: 2XDAY
     Dates: start: 20060328
  27. BECLAZONE [Concomitant]
     Dosage: AS NEEDED
     Dates: start: 20060328
  28. FUROSEMIDE [Concomitant]
     Dosage: 40 DAILY
     Dates: start: 20050927
  29. ALLOPURINOL [Concomitant]
     Dosage: 200 MG, DAILY
     Dates: start: 20030708

REACTIONS (1)
  - MYOCARDIAL INFARCTION [None]
